FAERS Safety Report 4718779-8 (Version None)
Quarter: 2005Q3

REPORT INFORMATION
  Report Type: 
  Country: None (occurrence: None)
  Receive Date: 20050719
  Receipt Date: 20050701
  Transmission Date: 20060218
  Serious: Yes (Life-Threatening, Hospitalization)
  Sender: FDA-Public Use
  Company Number: 216006

PATIENT
  Age: 64 Year

DRUGS (2)
  1. AVASTIN [Suspect]
     Indication: RENAL CELL CARCINOMA STAGE UNSPECIFIED
     Dosage: 10MG/KG DAYS 1+15 INTRAVENOUS
     Route: 042
     Dates: start: 20050124
  2. INTERFERON ALFA-2B (INTERFERON  ALFEA-2B) [Suspect]
     Indication: RENAL CELL CARCINOMA STAGE UNSPECIFIED
     Dosage: 9 MIU 3/WEEK SUBUCTANEOUS
     Route: 058

REACTIONS (4)
  - DEHYDRATION [None]
  - NAUSEA [None]
  - RENAL FAILURE [None]
  - VOMITING [None]
